FAERS Safety Report 7511016-0 (Version None)
Quarter: 2011Q2

REPORT INFORMATION
  Report Type: 
  Country: None (occurrence: None)
  Receive Date: 20110531
  Receipt Date: 20110524
  Transmission Date: 20111010
  Serious: No
  Sender: FDA-Public Use
  Company Number: US-PFIZER INC-2011112634

PATIENT
  Sex: Female
  Weight: 54.4 kg

DRUGS (6)
  1. PREMARIN [Suspect]
     Indication: ATROPHIC VULVOVAGINITIS
     Dosage: 0.625 MG, 2X/WEEK
     Route: 067
  2. LUNESTA [Concomitant]
     Indication: INSOMNIA
     Dosage: UNK
  3. SONATA [Concomitant]
     Dosage: UNK
  4. PEPCID [Concomitant]
     Dosage: UNK
  5. PREMARIN [Suspect]
     Indication: HYSTERECTOMY
  6. HYDROCHLOROTHIAZIDE [Concomitant]
     Indication: OSTEOPENIA
     Dosage: UNK

REACTIONS (2)
  - VAGINITIS BACTERIAL [None]
  - VULVOVAGINAL DISCOMFORT [None]
